FAERS Safety Report 16773338 (Version 1)
Quarter: 2019Q4

REPORT INFORMATION
  Report Type: Spontaneous
  Country: US (occurrence: US)
  Receive Date: 20190904
  Receipt Date: 20190904
  Transmission Date: 20200122
  Serious: Yes (Hospitalization)
  Sender: FDA-Public Use
  Company Number: None

PATIENT
  Age: 61 Year
  Sex: Male

DRUGS (14)
  1. HYDRALAZINE [Concomitant]
     Active Substance: HYDRALAZINE HYDROCHLORIDE
  2. FEROSUL [Concomitant]
  3. FOLIC ACID. [Concomitant]
     Active Substance: FOLIC ACID
  4. VITAMIN B1 [Concomitant]
     Active Substance: THIAMINE HYDROCHLORIDE
  5. CLOPIDOGREL [Concomitant]
     Active Substance: CLOPIDOGREL BISULFATE
  6. FARXIGA [Concomitant]
     Active Substance: DAPAGLIFLOZIN PROPANEDIOL
  7. LISINOPRIL. [Concomitant]
     Active Substance: LISINOPRIL
  8. TEMAZEPAM. [Concomitant]
     Active Substance: TEMAZEPAM
  9. CARVEDIOL [Concomitant]
     Active Substance: CARVEDILOL
  10. DIGOX [Concomitant]
     Active Substance: DIGOXIN
  11. FUROSEMIDE. [Concomitant]
     Active Substance: FUROSEMIDE
  12. LIDOCAINE. [Concomitant]
     Active Substance: LIDOCAINE
  13. SILDENAFIL. [Suspect]
     Active Substance: SILDENAFIL
     Indication: CHRONIC KIDNEY DISEASE
     Route: 048
  14. LUMIGAN [Concomitant]
     Active Substance: BIMATOPROST

REACTIONS (2)
  - Fall [None]
  - Upper limb fracture [None]

NARRATIVE: CASE EVENT DATE: 20190817
